FAERS Safety Report 21764614 (Version 1)
Quarter: 2022Q4

REPORT INFORMATION
  Report Type: Report from Study
  Country: US (occurrence: US)
  Receive Date: 20221222
  Receipt Date: 20221222
  Transmission Date: 20230112
  Serious: No
  Sender: FDA-Public Use
  Company Number: US-BRISTOL-MYERS SQUIBB COMPANY-2022-153576

PATIENT
  Age: 30 Year
  Sex: Female

DRUGS (3)
  1. ZEPOSIA [Suspect]
     Active Substance: OZANIMOD HYDROCHLORIDE
     Indication: Colitis ulcerative
     Dosage: 1 DOSAGE FORM= 1 CAPSULE
     Route: 048
     Dates: start: 20220607, end: 202209
  2. APRISO [Concomitant]
     Active Substance: MESALAMINE
     Indication: Product used for unknown indication
  3. METRONIDAZOLE [Concomitant]
     Active Substance: METRONIDAZOLE
     Indication: Product used for unknown indication

REACTIONS (2)
  - Maternal exposure before pregnancy [Unknown]
  - Colitis ulcerative [Unknown]
